FAERS Safety Report 19709013 (Version 1)
Quarter: 2021Q3

REPORT INFORMATION
  Report Type: Spontaneous
  Country: CN (occurrence: CN)
  Receive Date: 20210816
  Receipt Date: 20210816
  Transmission Date: 20211014
  Serious: Yes (Disabling)
  Sender: FDA-Public Use
  Company Number: CN-PFIZER INC-202100993822

PATIENT
  Age: 62 Year
  Sex: Male
  Weight: 78 kg

DRUGS (1)
  1. IDARUBICIN HCL [Suspect]
     Active Substance: IDARUBICIN HYDROCHLORIDE
     Indication: ACUTE LEUKAEMIA
     Dosage: 10 MG, 1X/DAY
     Route: 041
     Dates: start: 20210708, end: 20210712

REACTIONS (1)
  - Full blood count decreased [Recovering/Resolving]

NARRATIVE: CASE EVENT DATE: 20210719
